FAERS Safety Report 11098040 (Version 2)
Quarter: 2015Q2

REPORT INFORMATION
  Report Type: Spontaneous
  Country: KR (occurrence: KR)
  Receive Date: 20150507
  Receipt Date: 20150623
  Transmission Date: 20150821
  Serious: Yes (Hospitalization)
  Sender: FDA-Public Use
  Company Number: KR-OTSUKA PHARMACEUTICAL CO.-2015_000277

PATIENT
  Age: 71 Year
  Sex: Female
  Weight: 48 kg

DRUGS (5)
  1. DACOGEN [Suspect]
     Active Substance: DECITABINE
     Dosage: 20 MG/M2, QD
     Route: 042
     Dates: start: 20111219, end: 20111223
  2. G-CSF [Concomitant]
     Active Substance: GRANULOCYTE COLONY-STIMULATING FACTOR NOS
     Indication: ANAEMIA
     Dosage: 250 MG, UNK
     Route: 042
     Dates: start: 20110901
  3. DACOGEN [Suspect]
     Active Substance: DECITABINE
     Dosage: 20 MG/M2, QD
     Route: 042
     Dates: start: 20111115, end: 20111121
  4. DACOGEN [Suspect]
     Active Substance: DECITABINE
     Dosage: 20 MG/M2, QD
     Route: 042
     Dates: start: 20111004, end: 20111008
  5. DACOGEN [Suspect]
     Active Substance: DECITABINE
     Indication: MYELODYSPLASTIC SYNDROME
     Dosage: 20 MG/M2, QD
     Route: 042
     Dates: start: 20110905, end: 20110909

REACTIONS (1)
  - Pneumonia [Recovered/Resolved]

NARRATIVE: CASE EVENT DATE: 20120104
